FAERS Safety Report 12610257 (Version 1)
Quarter: 2016Q3

REPORT INFORMATION
  Report Type: Spontaneous
  Country: US (occurrence: None)
  Receive Date: 20160729
  Receipt Date: 20160729
  Transmission Date: 20161109
  Serious: Yes (Other)
  Sender: FDA-Public Use
  Company Number: None

PATIENT
  Age: 38 Year
  Sex: Female
  Weight: 70.31 kg

DRUGS (1)
  1. IMPLANON [Suspect]
     Active Substance: ETONOGESTREL
     Indication: CONTRACEPTION
     Dosage: IMPLANT EVERY 3 YR IMPLANTATION UNDER SKIN
     Route: 059
     Dates: start: 20130917, end: 20160330

REACTIONS (2)
  - Progesterone receptor assay positive [None]
  - Oestrogen receptor positive breast cancer [None]

NARRATIVE: CASE EVENT DATE: 20160226
